FAERS Safety Report 6780269-9 (Version None)
Quarter: 2010Q2

REPORT INFORMATION
  Report Type: 
  Country: None (occurrence: None)
  Receive Date: 20100618
  Receipt Date: 20100608
  Transmission Date: 20101027
  Serious: Yes (Hospitalization, Other)
  Sender: FDA-Public Use
  Company Number: BR-ABBOTT-10P-020-0648384-00

PATIENT
  Age: 40 Day
  Sex: Male
  Weight: 4.9 kg

DRUGS (1)
  1. SEVOFLURANE [Suspect]
     Indication: INDUCTION AND MAINTENANCE OF ANAESTHESIA

REACTIONS (6)
  - ACTIVATED PARTIAL THROMBOPLASTIN TIME ABNORMAL [None]
  - ANAESTHETIC COMPLICATION [None]
  - BLOOD DISORDER [None]
  - CYANOSIS [None]
  - PULMONARY HAEMORRHAGE [None]
  - VENTRICULAR DYSFUNCTION [None]
